FAERS Safety Report 9720921 (Version 1)
Quarter: 2013Q4

REPORT INFORMATION
  Report Type: Spontaneous
  Country: ES (occurrence: ES)
  Receive Date: 20131129
  Receipt Date: 20131129
  Transmission Date: 20140711
  Serious: Yes (Hospitalization, Other)
  Sender: FDA-Public Use
  Company Number: PHHY2013ES135732

PATIENT
  Age: 73 Year
  Sex: Female

DRUGS (2)
  1. ALENDRONIC ACID [Suspect]
     Dosage: 70 MG, QW
     Dates: start: 200206
  2. FOSAMAX [Suspect]
     Dosage: 10 MG, DAILY
     Dates: start: 199610

REACTIONS (4)
  - Femur fracture [Recovered/Resolved]
  - Pain in extremity [Recovered/Resolved]
  - Exostosis [Unknown]
  - Limb discomfort [Recovered/Resolved]
